FAERS Safety Report 4598425-7 (Version None)
Quarter: 2005Q1

REPORT INFORMATION
  Report Type: 
  Country: None (occurrence: None)
  Receive Date: 20050304
  Receipt Date: 20050222
  Transmission Date: 20050727
  Serious: Yes (Other)
  Sender: FDA-Public Use
  Company Number: ZA-ABBOTT-05P-143-0291747-00

PATIENT
  Age: 10 Year
  Sex: Male

DRUGS (2)
  1. EPILIM TABLETS [Suspect]
     Indication: EPILEPSY
     Route: 048
  2. EPILIM TABLETS [Suspect]
     Route: 048

REACTIONS (4)
  - CONDITION AGGRAVATED [None]
  - CONVULSION [None]
  - MYOCLONUS [None]
  - PETIT MAL EPILEPSY [None]
